FAERS Safety Report 7525548-2 (Version None)
Quarter: 2011Q2

REPORT INFORMATION
  Report Type: 
  Country: None (occurrence: None)
  Receive Date: 20110606
  Receipt Date: 20110602
  Transmission Date: 20111010
  Serious: Yes (Death, Other)
  Sender: FDA-Public Use
  Company Number: JP-ABBOTT-11P-087-0713759-00

PATIENT
  Sex: Female

DRUGS (8)
  1. BETAMETHASONE VALERATE/GENTAMICIN SULFATE [Concomitant]
     Indication: PSORIASIS
     Dates: start: 20101118, end: 20110224
  2. HUMIRA [Suspect]
     Indication: PSORIASIS
     Route: 058
     Dates: start: 20110106, end: 20110106
  3. ISONIAZID [Concomitant]
     Indication: ANTIBIOTIC PROPHYLAXIS
     Route: 048
     Dates: start: 20101118, end: 20110224
  4. SULFAMETHOXAZOLE AND TRIMETHOPRIM [Concomitant]
     Indication: PNEUMONIA
     Route: 048
     Dates: start: 20101118, end: 20110106
  5. FLUDROXYCORTIDE [Concomitant]
     Indication: PSORIASIS
     Dosage: 2 X 4 MCG/CM2/DAY
     Route: 062
     Dates: end: 20110203
  6. SULFAMETHOXAZOLE AND TRIMETHOPRIM [Concomitant]
     Indication: PROPHYLAXIS
  7. BETAMETHASONE BUTYRATE PROPIONATE [Concomitant]
     Indication: PSORIASIS
     Route: 061
     Dates: start: 20110203, end: 20110224
  8. HUMIRA [Suspect]
     Route: 058
     Dates: start: 20110120, end: 20110224

REACTIONS (4)
  - CHEST DISCOMFORT [None]
  - CARDIO-RESPIRATORY ARREST [None]
  - MYOCARDIAL INFARCTION [None]
  - LOSS OF CONSCIOUSNESS [None]
